FAERS Safety Report 4702685-9 (Version None)
Quarter: 2005Q2

REPORT INFORMATION
  Report Type: 
  Country: None (occurrence: None)
  Receive Date: 20050629
  Receipt Date: 20050211
  Transmission Date: 20051028
  Serious: No
  Sender: FDA-Public Use
  Company Number: US-GLAXOSMITHKLINE-A0545155A

PATIENT
  Age: 50 Year
  Sex: Female

DRUGS (7)
  1. ZYBAN [Suspect]
     Dosage: 150MG TWICE PER DAY
     Route: 048
     Dates: start: 20050201
  2. ADVAIR [Concomitant]
  3. SPIRIVA [Concomitant]
  4. NICODERM [Concomitant]
  5. REGLAN [Concomitant]
  6. NEXIUM [Concomitant]
  7. SINGULAIR [Concomitant]

REACTIONS (1)
  - DYSGEUSIA [None]
